FAERS Safety Report 12676172 (Version 1)
Quarter: 2016Q3

REPORT INFORMATION
  Report Type: Spontaneous
  Country: US (occurrence: None)
  Receive Date: 20160822
  Receipt Date: 20160822
  Transmission Date: 20161109
  Serious: No
  Sender: FDA-Public Use
  Company Number: None

PATIENT
  Age: 66 Year
  Sex: Female
  Weight: 86.18 kg

DRUGS (5)
  1. CHOLASE [Concomitant]
  2. TRAMADOL. [Suspect]
     Active Substance: TRAMADOL
     Indication: BACK PAIN
     Dates: start: 20150820
  3. NSULN (HUMALOG AND LANTUS) [Concomitant]
  4. VITAMIN D [Concomitant]
     Active Substance: CHOLECALCIFEROL
  5. TRAMADOL. [Suspect]
     Active Substance: TRAMADOL
     Indication: NEURALGIA
     Dates: start: 20150820

REACTIONS (5)
  - Paraesthesia [None]
  - Drug withdrawal syndrome [None]
  - Hypoaesthesia [None]
  - Serotonin syndrome [None]
  - Blood glucose decreased [None]

NARRATIVE: CASE EVENT DATE: 20160819
